FAERS Safety Report 17129855 (Version 2)
Quarter: 2020Q1

REPORT INFORMATION
  Report Type: Spontaneous
  Country: JP (occurrence: JP)
  Receive Date: 20191209
  Receipt Date: 20200103
  Transmission Date: 20200409
  Serious: Yes (Death)
  Sender: FDA-Public Use
  Company Number: JP-ACTELION-A-CH2019-198937

PATIENT
  Age: 61 Year
  Sex: Female

DRUGS (13)
  1. ADCIRCA [Concomitant]
     Active Substance: TADALAFIL
  2. URSODEOXYCHOLIC ACID [Concomitant]
     Active Substance: URSODIOL
  3. TENORMIN [Concomitant]
     Active Substance: ATENOLOL
  4. BONOTEO [Concomitant]
     Active Substance: MINODRONIC ACID
  5. NEORAL [Concomitant]
     Active Substance: CYCLOSPORINE
  6. MUCOSTA [Concomitant]
     Active Substance: REBAMIPIDE
  7. TRAZENTA [Concomitant]
     Active Substance: LINAGLIPTIN
  8. PREDNISOLONE. [Concomitant]
     Active Substance: PREDNISOLONE
  9. PARIET [Concomitant]
     Active Substance: RABEPRAZOLE SODIUM
  10. PREDONINE [Concomitant]
     Active Substance: PREDNISOLONE
  11. OPSUMIT [Suspect]
     Active Substance: MACITENTAN
     Indication: PULMONARY ARTERIAL HYPERTENSION
     Dosage: 10 MG, QD
     Route: 048
     Dates: start: 20160107, end: 20190109
  12. THYRADIN [Concomitant]
     Active Substance: LEVOTHYROXINE
  13. POTASSIUM IODIDE. [Concomitant]
     Active Substance: POTASSIUM IODIDE

REACTIONS (3)
  - Metastases to bone [Fatal]
  - Lung adenocarcinoma [Fatal]
  - Metastases to liver [Fatal]

NARRATIVE: CASE EVENT DATE: 201808
